FAERS Safety Report 15280219 (Version 2)
Quarter: 2018Q3

REPORT INFORMATION
  Report Type: Not Available
  Country: US (occurrence: US)
  Receive Date: 20180815
  Receipt Date: 20180828
  Transmission Date: 20181010
  Serious: No
  Sender: FDA-Public Use
  Company Number: US-NEUROCRINE BIOSCIENCES INC.-2018NBI02252

PATIENT
  Age: 59 Year
  Sex: Male

DRUGS (4)
  1. AMANTADINE. [Concomitant]
     Active Substance: AMANTADINE HYDROCHLORIDE
     Indication: ADVERSE DRUG REACTION
     Dosage: TAKE 3 AT BEDTIME
  2. CLOZARIL [Concomitant]
     Active Substance: CLOZAPINE
  3. REQUIP [Suspect]
     Active Substance: ROPINIROLE HYDROCHLORIDE
     Indication: ADVERSE DRUG REACTION
  4. INGREZZA [Suspect]
     Active Substance: VALBENAZINE
     Indication: DYSKINESIA
     Dates: start: 20171024, end: 201807

REACTIONS (5)
  - Dyskinesia [Unknown]
  - Drug interaction [Unknown]
  - Anxiety [Recovered/Resolved]
  - Somnolence [Unknown]
  - Vision blurred [Unknown]

NARRATIVE: CASE EVENT DATE: 201807
